FAERS Safety Report 8447149-4 (Version None)
Quarter: 2012Q2

REPORT INFORMATION
  Report Type: 
  Country: None (occurrence: None)
  Receive Date: 20120619
  Receipt Date: 20110831
  Transmission Date: 20120825
  Serious: No
  Sender: FDA-Public Use
  Company Number: US-PFIZER INC-K201101033

PATIENT
  Sex: Male

DRUGS (4)
  1. LEVOXYL [Suspect]
     Indication: THYROID DISORDER
     Dosage: 150 UG, UNK
     Route: 048
  2. LEVOXYL [Suspect]
     Dosage: 100 UG, UNK
     Route: 048
  3. LEVOXYL [Suspect]
     Dosage: 125 UG, UNK
     Route: 048
  4. LEVOXYL [Suspect]
     Dosage: 175 UG, UNK
     Route: 048

REACTIONS (2)
  - ALOPECIA [None]
  - PSORIASIS [None]
